FAERS Safety Report 7968733-8 (Version None)
Quarter: 2011Q4

REPORT INFORMATION
  Report Type: 
  Country: None (occurrence: None)
  Receive Date: 20111209
  Receipt Date: 20111201
  Transmission Date: 20120403
  Serious: Yes (Life-Threatening, Hospitalization, Other)
  Sender: FDA-Public Use
  Company Number: US-BAYER-2011-024151

PATIENT
  Age: 31 Year
  Sex: Female
  Weight: 68.027 kg

DRUGS (2)
  1. PAXIL [Concomitant]
     Indication: MOOD ALTERED
     Route: 048
  2. DROSPIRENONE AND ETHINYL ESTRADIOL [Suspect]
     Indication: ACNE
     Dosage: UNK
     Route: 048
     Dates: start: 20090101, end: 20090301

REACTIONS (11)
  - MONOPARESIS [None]
  - JOINT SWELLING [None]
  - INJURY [None]
  - PULMONARY EMBOLISM [None]
  - PAIN [None]
  - WEIGHT INCREASED [None]
  - CHEST PAIN [None]
  - PULMONARY INFARCTION [None]
  - DYSPNOEA [None]
  - OEDEMA PERIPHERAL [None]
  - GALLBLADDER DISORDER [None]
